FAERS Safety Report 8086051-7 (Version None)
Quarter: 2012Q1

REPORT INFORMATION
  Report Type: 
  Country: None (occurrence: None)
  Receive Date: 20120128
  Receipt Date: 20110607
  Transmission Date: 20120608
  Serious: No
  Sender: FDA-Public Use
  Company Number: US-ABBOTT-11P-163-0731628-00

PATIENT
  Sex: Male
  Weight: 73.548 kg

DRUGS (17)
  1. LEXAPRO [Concomitant]
     Indication: INSOMNIA
     Route: 048
  2. HYDROCORTISONE [Concomitant]
     Indication: RHEUMATOID ARTHRITIS
     Route: 048
  3. LEXAPRO [Concomitant]
     Indication: STRESS
  4. ZANAFLEX [Concomitant]
     Indication: MUSCLE RELAXANT THERAPY
     Route: 048
  5. ASPIRIN [Concomitant]
     Indication: PRODUCT USED FOR UNKNOWN INDICATION
     Dosage: AT BEDTIME
     Route: 048
  6. FENTANYL [Concomitant]
     Indication: SPINAL COMPRESSION FRACTURE
     Dosage: TRANSDERMAL PATCH
     Route: 061
  7. ZANAFLEX [Concomitant]
     Indication: PAIN
  8. FENTANYL [Concomitant]
     Indication: BACK DISORDER
  9. MYSOLINE [Concomitant]
     Indication: TREMOR
     Route: 048
  10. AMBIEN [Concomitant]
     Indication: PRODUCT USED FOR UNKNOWN INDICATION
     Dosage: AT BEDTIME
     Route: 048
  11. METHOTREXATE [Concomitant]
     Indication: RHEUMATOID ARTHRITIS
     Route: 048
  12. HUMIRA [Suspect]
     Indication: RHEUMATOID ARTHRITIS
     Route: 058
     Dates: start: 20110331, end: 20110531
  13. HUMIRA [Suspect]
     Route: 058
     Dates: start: 20110531
  14. VITAMIN D [Concomitant]
     Indication: PRODUCT USED FOR UNKNOWN INDICATION
     Route: 048
  15. METHYLPREDNISOLONE [Concomitant]
     Indication: RHEUMATOID ARTHRITIS
     Route: 048
  16. FOLIC ACID [Concomitant]
     Indication: VITAMIN SUPPLEMENTATION
     Route: 048
  17. PRILOSEC [Concomitant]
     Indication: PRODUCT USED FOR UNKNOWN INDICATION
     Route: 048

REACTIONS (5)
  - JOINT SWELLING [None]
  - DRUG EFFECT DECREASED [None]
  - GAIT DISTURBANCE [None]
  - BREAKTHROUGH PAIN [None]
  - ARTHRITIS [None]
